FAERS Safety Report 5269969-X (Version None)
Quarter: 2007Q1

REPORT INFORMATION
  Report Type: 
  Country: None (occurrence: None)
  Receive Date: 20061212
  Receipt Date: 20060523
  Transmission Date: 20070707
  Serious: Yes (Hospitalization)
  Sender: FDA-Public Use
  Company Number: RS006034-USA

PATIENT
  Age: 63 Year
  Sex: Male

DRUGS (34)
  1. ACIPHEX [Suspect]
     Dosage: ORAL
     Route: 048
     Dates: start: 20050907
  2. ENBREL [Suspect]
     Indication: RHEUMATOID ARTHRITIS
     Dosage: SEE IMAGE
     Route: 058
     Dates: start: 20051006, end: 20051016
  3. ENBREL [Suspect]
     Indication: RHEUMATOID ARTHRITIS
     Dosage: SEE IMAGE
     Route: 058
     Dates: start: 20051020, end: 20051031
  4. ENBREL [Suspect]
     Indication: RHEUMATOID ARTHRITIS
     Dosage: SEE IMAGE
     Route: 058
     Dates: start: 20050713, end: 20051222
  5. ENBREL [Suspect]
     Indication: RHEUMATOID ARTHRITIS
     Dosage: SEE IMAGE
     Route: 058
     Dates: start: 20051202, end: 20051222
  6. BUCILLAMINE (BUCILLAMINE) [Suspect]
     Indication: RHEUMATOID ARTHRITIS
     Dosage: 100 MG, 1 IN 1 D; ORAL
     Route: 048
     Dates: start: 20041130, end: 20050905
  7. ALENDRONATE SODIUM [Suspect]
     Indication: OSTEOPOROSIS
     Dosage: 5 MG, 1 IN 1 D, ORAL
     Route: 048
     Dates: start: 20041101, end: 20050905
  8. LANSOPRAZOLE (LANSPORAZOLE) [Suspect]
     Dosage: 15 MG, 1 IN 1 D, ORAL
     Route: 048
     Dates: end: 20050907
  9. SODIUM ALGINATE (SODIUM ALGINATE) [Suspect]
     Dosage: 60 MILLIGRAMMILLILITERS, 1 IN 1 D;
     Dates: start: 20050201, end: 20050905
  10. ETODOLAC [Suspect]
     Dosage: 400 MG, 1 IN 1 D;
     Dates: start: 20050225, end: 20050905
  11. VOGLIBOSE (VOGLIBOSE) [Suspect]
     Dosage: 0.6 MG, 1 IN 1 D;
     Dates: start: 20050324, end: 20050905
  12. BACTRIM [Suspect]
     Dosage: UNK, 1 IN 1 D;
     Dates: end: 20050901
  13. ISONIAZID [Suspect]
     Dosage: 300 MG, 1 IN 1 D;
     Dates: start: 20041201, end: 20050901
  14. SUCRALFATE [Suspect]
     Dosage: UNK; 1 IN 1 D;
     Dates: end: 20050905
  15. FERROUS CITRATE [Suspect]
     Dates: end: 20050901
  16. PREDNISOLONE [Concomitant]
  17. INDOMETHACIN [Concomitant]
  18. DICLOFENAC SODIUM [Concomitant]
  19. CRONTAMITON (CROTAMITON) [Concomitant]
  20. CALCIPOTRIOL (CALCIPOTRIOL) [Concomitant]
  21. HYDROXYZINE HCL [Concomitant]
  22. GENTAMICIN SULFATE [Concomitant]
  23. MELOXICAM [Concomitant]
  24. AZELASTINE (AZELASTINE) [Concomitant]
  25. DIPHENHYDRAMINE HCL [Concomitant]
  26. REBAMIPIDE (REBAMIPIDE) [Concomitant]
  27. OLOPATADINE HYDROCHLORIDE [Concomitant]
  28. DEXCHLORPHENIRAMINE MALEATE [Concomitant]
  29. LOXOPROFEN SODIUM (LOXOPROFEN SODIUM) [Concomitant]
  30. TACALCITOL (TACALCITOL) [Concomitant]
  31. NIFENAZONE (NIFENAZONE) [Concomitant]
  32. DIFLUPREDNATE (DIFLUPREDNATE) [Concomitant]
  33. NADIFLOXACIN (NADIFLOXACIN) [Concomitant]
  34. HOMOCHLORCYCLIZINE (HOMOCHLORCYCLIZINE) [Concomitant]

REACTIONS (1)
  - ERYTHEMA MULTIFORME [None]
